FAERS Safety Report 7106619-1 (Version None)
Quarter: 2010Q4

REPORT INFORMATION
  Report Type: 
  Country: None (occurrence: None)
  Receive Date: 20101116
  Receipt Date: 20101102
  Transmission Date: 20110411
  Serious: No
  Sender: FDA-Public Use
  Company Number: US-ABBOTT-10P-163-0670480-00

PATIENT
  Weight: 98.064 kg

DRUGS (4)
  1. SIMCOR [Suspect]
     Indication: LIPOPROTEIN (A) INCREASED
     Dosage: 1000/20
     Dates: start: 20100801, end: 20100901
  2. NIACIN EXTENDED RELEASE (NIASPAN COATED) [Concomitant]
     Indication: LIPOPROTEIN (A) INCREASED
     Dates: start: 20090101, end: 20100901
  3. NIACIN EXTENDED RELEASE (NIASPAN COATED) [Concomitant]
     Dates: start: 20101001, end: 20101102
  4. NIACIN EXTENDED RELEASE (NIASPAN COATED) [Concomitant]
     Dates: start: 20101103

REACTIONS (1)
  - RASH GENERALISED [None]
